FAERS Safety Report 4374592-5 (Version None)
Quarter: 2004Q2

REPORT INFORMATION
  Report Type: 
  Country: None (occurrence: None)
  Receive Date: 20040602
  Receipt Date: 20040206
  Transmission Date: 20050107
  Serious: No
  Sender: FDA-Public Use
  Company Number: 200412332BWH

PATIENT
  Sex: Male
  Weight: 122.4712 kg

DRUGS (2)
  1. LEVITRA [Suspect]
     Dosage: SEE IMAGE
     Route: 048
  2. VIAGRA [Concomitant]

REACTIONS (1)
  - DRUG INEFFECTIVE [None]
